FAERS Safety Report 24882496 (Version 2)
Quarter: 2025Q1

REPORT INFORMATION
  Report Type: Spontaneous
  Country: US (occurrence: US)
  Receive Date: 20250124
  Receipt Date: 20250129
  Transmission Date: 20250409
  Serious: No
  Sender: TRAVERE THERAPEUTICS
  Company Number: US-TRAVERE-2025TVT00012

PATIENT
  Sex: Male

DRUGS (4)
  1. FILSPARI [Suspect]
     Active Substance: SPARSENTAN
     Indication: IgA nephropathy
     Route: 048
  2. FILSPARI [Suspect]
     Active Substance: SPARSENTAN
     Dosage: THE PATIENT TOOK A QUARTER OF THE DOSE
     Route: 048
  3. FILSPARI [Suspect]
     Active Substance: SPARSENTAN
     Route: 048
  4. FILSPARI [Suspect]
     Active Substance: SPARSENTAN
     Dosage: SPLIT HIS PILLS INTO 2 AND TAKE 100 MG DOSE
     Route: 048

REACTIONS (7)
  - Feeling abnormal [Unknown]
  - Incorrect dose administered [Unknown]
  - Fatigue [Unknown]
  - Somnolence [None]
  - Loss of personal independence in daily activities [Unknown]
  - Lethargy [Unknown]
  - Wrong technique in product usage process [Unknown]
